FAERS Safety Report 14474856 (Version 2)
Quarter: 2018Q1

REPORT INFORMATION
  Report Type: Spontaneous
  Country: EE (occurrence: EE)
  Receive Date: 20180201
  Receipt Date: 20180208
  Transmission Date: 20180509
  Serious: Yes (Life-Threatening)
  Sender: FDA-Public Use
  Company Number: EE-ABBVIE-18S-221-2242071-00

PATIENT
  Age: 57 Year

DRUGS (2)
  1. EXVIERA [Suspect]
     Active Substance: DASABUVIR
     Indication: CHRONIC HEPATITIS C
     Route: 048
     Dates: start: 20180102, end: 20180106
  2. VIEKIRAX [Suspect]
     Active Substance: OMBITASVIR\PARITAPREVIR\RITONAVIR
     Indication: CHRONIC HEPATITIS C
     Dosage: FORM STRENGTH: 12.5 MG/ 75 MG/ 50 MG
     Route: 048
     Dates: start: 20180102, end: 20180106

REACTIONS (5)
  - Haemorrhage [Recovered/Resolved]
  - Oedema [Recovered/Resolved]
  - Hyperaemia [Not Recovered/Not Resolved]
  - Malaise [Recovered/Resolved]
  - Hyperaemia [Recovered/Resolved]

NARRATIVE: CASE EVENT DATE: 20180105
